FAERS Safety Report 7402317-5 (Version None)
Quarter: 2011Q1

REPORT INFORMATION
  Report Type: 
  Country: None (occurrence: None)
  Receive Date: 20110318
  Receipt Date: 20110318
  Transmission Date: 20110831
  Serious: Yes (Other)
  Sender: FDA-Public Use
  Company Number: 2011SP012550

PATIENT
  Sex: Female

DRUGS (1)
  1. IMPLANON [Suspect]
     Indication: PRODUCT USED FOR UNKNOWN INDICATION
     Dosage: 1 DF ; 1 DF
     Dates: end: 20110315

REACTIONS (4)
  - POLYCYSTIC OVARIES [None]
  - APPLICATION SITE NODULE [None]
  - APPLICATION SITE HAEMATOMA [None]
  - APPLICATION SITE BLEEDING [None]
